FAERS Safety Report 17820124 (Version 7)
Quarter: 2023Q4

REPORT INFORMATION
  Report Type: Spontaneous
  Country: DE (occurrence: DE)
  Receive Date: 20200525
  Receipt Date: 20231027
  Transmission Date: 20240110
  Serious: Yes (Other)
  Sender: FDA-Public Use
  Company Number: DE-002147023-NVSC2020DE130796

PATIENT
  Sex: Female
  Weight: 72 kg

DRUGS (15)
  1. LETROZOLE [Suspect]
     Active Substance: LETROZOLE
     Indication: Breast cancer metastatic
     Dosage: 2.5 MILLIGRAM, ONCE A DAY
     Route: 048
     Dates: start: 20190401
  2. KISQALI [Suspect]
     Active Substance: RIBOCICLIB
     Indication: Breast cancer metastatic
     Dosage: 600 MILLIGRAM, ONCE A DAY(SCHEMA 21 DAYS INTAKE, 7 DAYS PAUSE)
     Route: 048
     Dates: start: 20190401
  3. KISQALI [Suspect]
     Active Substance: RIBOCICLIB
     Dosage: 600 MILLIGRAM, ONCE A DAY
     Route: 048
     Dates: start: 20200821
  4. KISQALI [Suspect]
     Active Substance: RIBOCICLIB
     Dosage: 600 MILLIGRAM, ONCE A DAY
     Route: 048
     Dates: start: 20200924
  5. KISQALI [Suspect]
     Active Substance: RIBOCICLIB
     Dosage: 400 MILLIGRAM, ONCE A DAY
     Route: 048
     Dates: start: 20201023
  6. KISQALI [Suspect]
     Active Substance: RIBOCICLIB
     Dosage: 400 MILLIGRAM, ONCE A DAY
     Route: 048
     Dates: start: 20220706
  7. AFINITOR [Concomitant]
     Active Substance: EVEROLIMUS
     Indication: Breast cancer metastatic
     Dosage: 2.5 MILLIGRAM, ONCE A DAY(2.5 MG, QD)
     Route: 048
     Dates: start: 20230522, end: 20230528
  8. AFINITOR [Concomitant]
     Active Substance: EVEROLIMUS
     Dosage: 5 MILLIGRAM, ONCE A DAY(5 MG, QD)
     Route: 048
     Dates: start: 20230529, end: 20230604
  9. AFINITOR [Concomitant]
     Active Substance: EVEROLIMUS
     Dosage: 7.5 MILLIGRAM, ONCE A DAY(7.5 MG, QD)
     Route: 048
     Dates: start: 20230605, end: 20230611
  10. AFINITOR [Concomitant]
     Active Substance: EVEROLIMUS
     Dosage: 10 MILLIGRAM, ONCE A DAY(10 MG, QD)
     Route: 048
     Dates: start: 20230612, end: 20230710
  11. BISOPROLOL [Concomitant]
     Active Substance: BISOPROLOL\BISOPROLOL FUMARATE
     Indication: Product used for unknown indication
     Dosage: UNK
     Route: 065
  12. CALCIUM [Concomitant]
     Active Substance: CALCIUM
     Indication: Product used for unknown indication
     Dosage: UNK
     Route: 065
  13. ELIQUIS [Concomitant]
     Active Substance: APIXABAN
     Indication: Product used for unknown indication
     Dosage: UNK
     Route: 065
  14. VITAMIN D2 [Concomitant]
     Active Substance: ERGOCALCIFEROL
     Indication: Product used for unknown indication
     Dosage: UNK
     Route: 065
  15. XGEVA [Concomitant]
     Active Substance: DENOSUMAB
     Indication: Product used for unknown indication
     Dosage: UNK
     Route: 065

REACTIONS (4)
  - Polyneuropathy [Recovering/Resolving]
  - Gait disturbance [Not Recovered/Not Resolved]
  - Balance disorder [Not Recovered/Not Resolved]
  - Paraesthesia [Not Recovered/Not Resolved]

NARRATIVE: CASE EVENT DATE: 20200217
